FAERS Safety Report 8463143-1 (Version None)
Quarter: 2012Q2

REPORT INFORMATION
  Report Type: 
  Country: None (occurrence: None)
  Receive Date: 20120323
  Receipt Date: 20110921
  Transmission Date: 20120825
  Serious: Yes (Other)
  Sender: FDA-Public Use
  Company Number: 163-21880-11092899

PATIENT
  Age: 76 Year
  Sex: Male

DRUGS (11)
  1. ARANESP [Concomitant]
  2. FOLIC ACID [Concomitant]
  3. VICODIN [Concomitant]
  4. VITAMIN D [Concomitant]
  5. REVLIMID [Suspect]
     Indication: MYELODYSPLASTIC SYNDROME
     Dosage: 10 MG, 1 IN 1 D, PO
     Route: 048
     Dates: start: 20110802
  6. ATENOLOL [Concomitant]
  7. LOVASTATIN [Concomitant]
  8. MULTIVITAMIN [Concomitant]
  9. PLAVX (CLOPIDOGREL SULFATE) [Concomitant]
  10. NITROSTAT [Concomitant]
  11. VITAMIN B (VITAMIN B) [Concomitant]

REACTIONS (2)
  - THROMBOCYTOPENIA [None]
  - NEUTROPENIA [None]
